FAERS Safety Report 25303085 (Version 4)
Quarter: 2025Q3

REPORT INFORMATION
  Report Type: Report from Study
  Country: US (occurrence: US)
  Receive Date: 20250512
  Receipt Date: 20250711
  Transmission Date: 20251021
  Serious: No
  Sender: MALLINCKRODT
  Company Number: US-MALLINCKRODT-MNK202502696

PATIENT
  Sex: Female

DRUGS (3)
  1. CORTICOTROPIN [Suspect]
     Active Substance: CORTICOTROPIN
     Indication: Ulcerative keratitis
  2. ATORVASTATIN [Concomitant]
     Active Substance: ATORVASTATIN
  3. ATEN [Concomitant]

REACTIONS (3)
  - Pain [Unknown]
  - Hypokinesia [Unknown]
  - Product use in unapproved indication [Unknown]
